FAERS Safety Report 8441675 (Version 3)
Quarter: 2018Q4

REPORT INFORMATION
  Report Type: Spontaneous
  Country: HU (occurrence: HU)
  Receive Date: 20120305
  Receipt Date: 20181127
  Transmission Date: 20190205
  Serious: Yes (Congenital Anomaly, Other)
  Sender: FDA-Public Use
  Company Number: PHHY2012HU017037

PATIENT

DRUGS (6)
  1. MEPHENYTOIN [Suspect]
     Active Substance: MEPHENYTOIN
     Route: 064
  2. CARBAMAZEPINE. [Suspect]
     Active Substance: CARBAMAZEPINE
     Indication: EPILEPSY
     Route: 065
  3. DIAZEPAM. [Suspect]
     Active Substance: DIAZEPAM
     Indication: EPILEPSY
     Route: 064
  4. PHENYTOIN. [Suspect]
     Active Substance: PHENYTOIN
     Route: 064
  5. ETHOSUXIMIDE. [Suspect]
     Active Substance: ETHOSUXIMIDE
     Indication: EPILEPSY
     Route: 065
  6. PRIMIDONE. [Suspect]
     Active Substance: PRIMIDONE
     Indication: EPILEPSY
     Route: 064

REACTIONS (7)
  - Congenital cardiovascular anomaly [Unknown]
  - Coloboma [Unknown]
  - Patent ductus arteriosus [Unknown]
  - Choanal atresia [Unknown]
  - Microtia [Unknown]
  - Foetal exposure during pregnancy [Unknown]
  - Syndactyly [Unknown]
